FAERS Safety Report 11815983 (Version 1)
Quarter: 2015Q4

REPORT INFORMATION
  Report Type: Report from Study
  Country: AU (occurrence: AU)
  Receive Date: 20151209
  Receipt Date: 20151209
  Transmission Date: 20160305
  Serious: Yes (Other)
  Sender: FDA-Public Use
  Company Number: AU-INCYTE CORPORATION-2015IN006388

PATIENT
  Sex: Male

DRUGS (1)
  1. JAKAFI [Suspect]
     Active Substance: RUXOLITINIB
     Indication: MYELOFIBROSIS
     Dosage: 20 MG, BID
     Route: 048

REACTIONS (2)
  - Cognitive disorder [Unknown]
  - Cerebral palsy [Unknown]
